FAERS Safety Report 6545382-X (Version None)
Quarter: 2010Q1

REPORT INFORMATION
  Report Type: 
  Country: None (occurrence: None)
  Receive Date: 20100119
  Receipt Date: 20100106
  Transmission Date: 20100710
  Serious: Yes (Other)
  Sender: FDA-Public Use
  Company Number: 2010SP001722

PATIENT
  Sex: Female

DRUGS (1)
  1. SAPHRIS [Suspect]
     Indication: DRUG USE FOR UNKNOWN INDICATION
     Dosage: 5 MG; SL
     Route: 060
     Dates: start: 20091102

REACTIONS (7)
  - AGEUSIA [None]
  - AGITATION [None]
  - GLOSSODYNIA [None]
  - NEPHROLITHIASIS [None]
  - NEURALGIA [None]
  - ORAL DISCOMFORT [None]
  - VIRAL INFECTION [None]
